FAERS Safety Report 9699937 (Version 1)
Quarter: 2013Q4

REPORT INFORMATION
  Report Type: Spontaneous
  Country: IN (occurrence: IN)
  Receive Date: 20131121
  Receipt Date: 20131121
  Transmission Date: 20140711
  Serious: Yes (Death)
  Sender: FDA-Public Use
  Company Number: IN-MERCK-1311IND007679

PATIENT
  Age: 48 Year
  Sex: Male

DRUGS (2)
  1. VIRAFERONPEG [Suspect]
     Dosage: 50 MICROGRAM, QW
     Route: 058
  2. REBETOL [Suspect]
     Route: 048

REACTIONS (1)
  - Dialysis [Fatal]
